FAERS Safety Report 16345456 (Version 1)
Quarter: 2019Q2

REPORT INFORMATION
  Report Type: Spontaneous
  Country: US (occurrence: US)
  Receive Date: 20190523
  Receipt Date: 20190523
  Transmission Date: 20190711
  Serious: No
  Sender: FDA-Public Use
  Company Number: US-SHIRE-US201916688

PATIENT

DRUGS (1)
  1. MOTEGRITY [Suspect]
     Active Substance: PRUCALOPRIDE SUCCINATE
     Indication: CONSTIPATION
     Dosage: 2 MILLIGRAM, 2X/DAY:BID
     Dates: start: 201905, end: 201905

REACTIONS (1)
  - Drug ineffective [Recovered/Resolved]

NARRATIVE: CASE EVENT DATE: 201905
